FAERS Safety Report 11534440 (Version 1)
Quarter: 2015Q3

REPORT INFORMATION
  Report Type: Spontaneous
  Country: US (occurrence: None)
  Receive Date: 20150918
  Receipt Date: 20150918
  Transmission Date: 20151125
  Serious: Yes (Hospitalization)
  Sender: FDA-Public Use
  Company Number: None

PATIENT
  Age: 69 Year
  Sex: Male
  Weight: 98.2 kg

DRUGS (2)
  1. AMOXICILLIN/CLAVULANATE [Suspect]
     Active Substance: AMOXICILLIN\CLAVULANATE POTASSIUM
     Indication: SURGERY
     Dosage: MG BID PO
     Route: 048
     Dates: start: 20150903, end: 20150904
  2. AMOXICILLIN/CLAVULANATE [Suspect]
     Active Substance: AMOXICILLIN\CLAVULANATE POTASSIUM
     Indication: PROPHYLAXIS
     Dosage: MG BID PO
     Route: 048
     Dates: start: 20150903, end: 20150904

REACTIONS (4)
  - Vasculitis [None]
  - Henoch-Schonlein purpura [None]
  - Dyspnoea [None]
  - Haematochezia [None]

NARRATIVE: CASE EVENT DATE: 20150904
